FAERS Safety Report 4462514-8 (Version None)
Quarter: 2004Q3

REPORT INFORMATION
  Report Type: 
  Country: None (occurrence: None)
  Receive Date: 20040929
  Receipt Date: 20040923
  Transmission Date: 20050211
  Serious: Yes (Hospitalization)
  Sender: FDA-Public Use
  Company Number: DE-MERCK-0409DEU00160

PATIENT
  Age: 53 Year
  Sex: Female
  Weight: 75 kg

DRUGS (12)
  1. AMITRIPTYLINE HYDROCHLORIDE [Suspect]
     Indication: PAIN
     Route: 048
     Dates: start: 20030901
  2. ASPIRIN [Concomitant]
     Indication: PROPHYLAXIS
     Route: 048
     Dates: start: 20031001, end: 20040703
  3. FENTANYL [Concomitant]
     Route: 061
     Dates: end: 20040624
  4. FLUTICASONE PROPIONATE [Concomitant]
     Indication: DYSPNOEA
     Route: 055
     Dates: start: 20030901
  5. GABAPENTIN [Concomitant]
     Indication: PAIN
     Route: 048
     Dates: end: 20040627
  6. HYDROMORPHONE HYDROCHLORIDE [Suspect]
     Indication: PAIN
     Route: 048
     Dates: start: 20040627, end: 20040701
  7. HYDROMORPHONE HYDROCHLORIDE [Suspect]
     Route: 048
     Dates: start: 20040701
  8. OXYCODONE HYDROCHLORIDE [Concomitant]
     Route: 065
     Dates: start: 20040625
  9. RAMIPRIL [Concomitant]
     Indication: HYPERTENSION
     Route: 048
     Dates: start: 20031001
  10. VIOXX [Suspect]
     Indication: PAIN
     Route: 048
     Dates: start: 20040627
  11. SODIUM PICOSULFATE [Concomitant]
     Indication: CONSTIPATION
     Route: 048
     Dates: start: 20030901, end: 20040703
  12. XIPAMIDE [Concomitant]
     Indication: OEDEMA
     Route: 048
     Dates: start: 20031001

REACTIONS (2)
  - DEPRESSED LEVEL OF CONSCIOUSNESS [None]
  - DRUG INTERACTION [None]
